FAERS Safety Report 9806174 (Version 2)
Quarter: 2014Q1

REPORT INFORMATION
  Report Type: Spontaneous
  Country: JP (occurrence: JP)
  Receive Date: 20140109
  Receipt Date: 20140121
  Transmission Date: 20141002
  Serious: Yes (Other)
  Sender: FDA-Public Use
  Company Number: JP-PFIZER INC-2014003514

PATIENT
  Sex: 0

DRUGS (1)
  1. AMPICILLIN SODIUM/SULBACTAM SODIUM [Suspect]
     Dosage: UNK
     Route: 042

REACTIONS (3)
  - Bone marrow failure [Unknown]
  - White blood cell count decreased [Unknown]
  - Body temperature increased [Unknown]
